FAERS Safety Report 10983269 (Version 1)
Quarter: 2015Q1

REPORT INFORMATION
  Report Type: Spontaneous
  Country: CA (occurrence: None)
  Receive Date: 20150302
  Receipt Date: 20150302
  Transmission Date: 20150721
  Serious: Yes (Hospitalization)
  Sender: FDA-Public Use
  Company Number: 2014SYM00045

PATIENT
  Sex: Male

DRUGS (1)
  1. ACEON [Suspect]
     Active Substance: PERINDOPRIL ERBUMINE
     Indication: HYPERTENSION
     Route: 048
     Dates: start: 20130830, end: 20130930

REACTIONS (1)
  - Swollen tongue [None]

NARRATIVE: CASE EVENT DATE: 20130930
